FAERS Safety Report 23603336 (Version 1)
Quarter: 2024Q1

REPORT INFORMATION
  Report Type: Spontaneous
  Country: US (occurrence: US)
  Receive Date: 20240307
  Receipt Date: 20240307
  Transmission Date: 20240410
  Serious: No
  Sender: FDA-Public Use
  Company Number: US-PADAGIS-2024PAD00301

PATIENT

DRUGS (1)
  1. ESTRADIOL VAGINAL [Suspect]
     Active Substance: ESTRADIOL
     Indication: Menopausal symptoms
     Dosage: 0.5 G (EVERY MONDAY, WEDNESDAY, AND FRIDAY)
     Route: 065

REACTIONS (2)
  - Underdose [Unknown]
  - Inappropriate schedule of product administration [Unknown]
